FAERS Safety Report 5232456-9 (Version None)
Quarter: 2007Q1

REPORT INFORMATION
  Report Type: 
  Country: None (occurrence: None)
  Receive Date: 20070205
  Receipt Date: 20070126
  Transmission Date: 20070707
  Serious: Yes (Death, Hospitalization)
  Sender: FDA-Public Use
  Company Number: KADN20070022

PATIENT
  Age: 56 Year
  Sex: Male
  Weight: 136.0791 kg

DRUGS (12)
  1. KADIAN [Suspect]
     Indication: MUSCULOSKELETAL CHEST PAIN
     Dosage: PO
     Route: 048
     Dates: start: 20031201, end: 20031201
  2. OXYCODONE HCL [Suspect]
     Indication: MUSCULOSKELETAL CHEST PAIN
     Dosage: PO
     Route: 048
     Dates: start: 20031220, end: 20031201
  3. PERCOCET [Suspect]
     Indication: MUSCULOSKELETAL CHEST PAIN
     Dosage: PO
     Route: 048
     Dates: start: 20031220, end: 20031201
  4. OXYCONTIN [Suspect]
  5. XANAX [Suspect]
  6. NEURONTIN [Concomitant]
  7. LISINOPRIL [Concomitant]
  8. DIOVAN [Concomitant]
  9. LIPITOR [Concomitant]
  10. METFORMIN HCL [Concomitant]
  11. AVANDIA [Concomitant]
  12. LEVAQUIN [Concomitant]

REACTIONS (8)
  - ACCIDENTAL DEATH [None]
  - ANOXIC ENCEPHALOPATHY [None]
  - COMA [None]
  - DRUG INEFFECTIVE [None]
  - DYSARTHRIA [None]
  - DYSPNOEA [None]
  - OVERDOSE [None]
  - THERAPEUTIC AGENT TOXICITY [None]
